FAERS Safety Report 5639146-9 (Version None)
Quarter: 2008Q1

REPORT INFORMATION
  Report Type: 
  Country: None (occurrence: None)
  Receive Date: 20080226
  Receipt Date: 20080213
  Transmission Date: 20080703
  Serious: Yes (Hospitalization)
  Sender: FDA-Public Use
  Company Number: US-ELI_LILLY_AND_COMPANY-US200709005300

PATIENT
  Sex: Female
  Weight: 57.596 kg

DRUGS (13)
  1. FORTEO [Suspect]
     Indication: OSTEOPOROSIS
     Dosage: 20 UG, DAILY (1/D)
     Route: 058
     Dates: start: 20070601
  2. ECOTRIN [Concomitant]
  3. ALLEGRA [Concomitant]
  4. DYAZIDE [Concomitant]
  5. CARDIZEM [Concomitant]
  6. CELEBREX [Concomitant]
  7. FOLIC ACID [Concomitant]
  8. PINDOLOL [Concomitant]
  9. BENICAR [Concomitant]
  10. TYLENOL (CAPLET) [Concomitant]
  11. PLAQUENIL [Concomitant]
  12. METHOTREXATE [Concomitant]
  13. CALCIUM CARBONATE [Concomitant]

REACTIONS (1)
  - SMALL INTESTINAL OBSTRUCTION [None]
